FAERS Safety Report 6596498-3 (Version None)
Quarter: 2010Q1

REPORT INFORMATION
  Report Type: 
  Country: None (occurrence: None)
  Receive Date: 20100223
  Receipt Date: 20100217
  Transmission Date: 20100710
  Serious: Yes (Hospitalization)
  Sender: FDA-Public Use
  Company Number: FR-ASTRAZENECA-2010SE06892

PATIENT
  Age: 23200 Day
  Sex: Male

DRUGS (5)
  1. RHINOCORT [Suspect]
     Route: 045
  2. SPEDIFEN [Suspect]
     Route: 048
  3. PROPOFAN [Concomitant]
     Dosage: AS REQUIRED.
     Route: 065
  4. ZOMIG [Concomitant]
     Dosage: AS REQUIRED.
     Route: 065
  5. DI ANTALVIC [Concomitant]
     Dosage: AS REQUIRED.
     Route: 065

REACTIONS (1)
  - THROMBOCYTOPENIA [None]
